FAERS Safety Report 10956524 (Version 1)
Quarter: 2015Q1

REPORT INFORMATION
  Report Type: Spontaneous
  Country: US (occurrence: US)
  Receive Date: 20150326
  Receipt Date: 20150326
  Transmission Date: 20150721
  Serious: Yes (Death, Other)
  Sender: FDA-Public Use
  Company Number: US-CIPLA LTD.-2015US02416

PATIENT

DRUGS (5)
  1. CITALOPRAM [Suspect]
     Active Substance: CITALOPRAM HYDROBROMIDE
  2. METHADONE [Suspect]
     Active Substance: METHADONE HYDROCHLORIDE
  3. HEROIN [Suspect]
     Active Substance: DIACETYLMORPHINE
  4. PROPRANOLOL [Suspect]
     Active Substance: PROPRANOLOL\PROPRANOLOL HYDROCHLORIDE
  5. ALPRAZOLAM. [Suspect]
     Active Substance: ALPRAZOLAM

REACTIONS (3)
  - Respiratory arrest [Unknown]
  - Cardiac arrest [Unknown]
  - Drug abuse [Fatal]
